FAERS Safety Report 8817363 (Version 2)
Quarter: 2012Q4

REPORT INFORMATION
  Report Type: Report from Study
  Country: JP (occurrence: JP)
  Receive Date: 20121001
  Receipt Date: 20121019
  Transmission Date: 20130627
  Serious: Yes (Hospitalization)
  Sender: FDA-Public Use
  Company Number: JP-ASTELLAS-2011JP001341

PATIENT
  Age: 58 Year
  Sex: Female
  Weight: 52 kg

DRUGS (21)
  1. TACROLIMUS CAPSULES [Suspect]
     Indication: LUPUS NEPHRITIS
     Dosage: 3 mg, Unknown/D
     Route: 048
     Dates: start: 20070611, end: 20110405
  2. TACROLIMUS CAPSULES [Suspect]
     Dosage: 2.5 mg, Unknown/D
     Route: 048
     Dates: start: 20110406
  3. BAYASPIRIN [Suspect]
     Dosage: 100 mg, UID/QD
     Route: 048
  4. PREDNISOLONE [Concomitant]
     Indication: LUPUS NEPHRITIS
     Dosage: 10 mg, Unknown/D
     Route: 048
     Dates: end: 20070806
  5. PREDNISOLONE [Concomitant]
     Dosage: 8 mg, Unknown/D
     Route: 048
     Dates: start: 20070807, end: 20080122
  6. PREDNISOLONE [Concomitant]
     Dosage: 6 mg, Unknown/D
     Route: 048
     Dates: start: 20080123, end: 20080603
  7. PREDNISOLONE [Concomitant]
     Dosage: 5 mg, Unknown/D
     Route: 048
     Dates: start: 20080604
  8. BREDININ [Concomitant]
     Indication: LUPUS NEPHRITIS
     Dosage: 150 mg, Unknown/D
     Route: 048
     Dates: end: 20070610
  9. BREDININ [Concomitant]
     Dosage: 150 mg, Unknown/D
     Route: 048
     Dates: start: 20091201
  10. FERROMIA [Concomitant]
     Dosage: 100 mg, Unknown/D
     Route: 048
     Dates: end: 20071126
  11. LASIX [Concomitant]
     Dosage: 20 mg, Unknown/D
     Route: 048
  12. LASIX [Concomitant]
     Dosage: 10 mg, Unknown/D
     Route: 048
  13. NU-LOTAN [Concomitant]
     Dosage: 25 mg, Unknown/D
     Route: 048
  14. NIVADIL [Concomitant]
     Indication: HYPERTENSION
     Dosage: 4 mg, Unknown/D
     Route: 048
  15. MARZULENE-S [Concomitant]
     Dosage: 1000 mg, Unknown/D
     Route: 048
  16. ITOROL [Concomitant]
     Dosage: 40 mg, Unknown/D
     Route: 048
  17. SIGMART [Concomitant]
     Dosage: 15 mg, Unknown/D
     Route: 048
  18. LIPITOR [Concomitant]
     Indication: HYPERLIPIDAEMIA
     Dosage: 10 mg, Unknown/D
     Route: 048
  19. FOSAMAC [Concomitant]
     Indication: OSTEOPOROSIS
     Dosage: 35 mg, Weekly
     Route: 048
     Dates: start: 20080328
  20. ALFAROL [Concomitant]
     Indication: OSTEOPOROSIS
     Dosage: 1 ug, Unknown/D
     Route: 048
     Dates: start: 20080402
  21. ALOSITOL [Concomitant]
     Indication: HYPERURICAEMIA
     Dosage: 200 mg, Unknown/D
     Route: 048
     Dates: start: 20080604

REACTIONS (4)
  - Tibia fracture [Recovering/Resolving]
  - Fibula fracture [Recovering/Resolving]
  - Renal impairment [Recovered/Resolved]
  - Glycosylated haemoglobin increased [Unknown]
